FAERS Safety Report 5812205-3 (Version None)
Quarter: 2008Q3

REPORT INFORMATION
  Report Type: 
  Country: None (occurrence: None)
  Receive Date: 20080716
  Receipt Date: 20080702
  Transmission Date: 20090109
  Serious: Yes (Hospitalization)
  Sender: FDA-Public Use
  Company Number: JP-GENENTECH-264213

PATIENT
  Sex: Female

DRUGS (3)
  1. HERCEPTIN [Suspect]
     Indication: BREAST CANCER METASTATIC
     Dosage: 2 MG/KG, 1/WEEK
     Route: 041
     Dates: start: 20071029
  2. HERCEPTIN [Suspect]
     Dosage: 2 MG/KG, 1/WEEK
     Dates: start: 20080508
  3. TAXOL [Suspect]
     Indication: DISEASE PROGRESSION
     Dosage: UNK
     Route: 041
     Dates: start: 20080508

REACTIONS (1)
  - CYSTITIS HAEMORRHAGIC [None]
